FAERS Safety Report 17135333 (Version 1)
Quarter: 2019Q4

REPORT INFORMATION
  Report Type: Spontaneous
  Country: DK (occurrence: DK)
  Receive Date: 20191210
  Receipt Date: 20191210
  Transmission Date: 20200122
  Serious: Yes (Disabling)
  Sender: FDA-Public Use
  Company Number: DK-PFIZER INC-2019525785

PATIENT
  Age: 72 Year
  Sex: Female
  Weight: 60 kg

DRUGS (2)
  1. PANTOPRAZOLE [Concomitant]
     Active Substance: PANTOPRAZOLE
     Indication: GASTROOESOPHAGEAL REFLUX DISEASE
     Dosage: 40 MG, 1X/DAY
     Route: 048
     Dates: start: 20130524
  2. ZOLEDRONIC ACID [Suspect]
     Active Substance: ZOLEDRONIC ACID
     Indication: OSTEOPOROSIS PROPHYLAXIS
     Dosage: STRENGTH: 4 MG/100 ML, DOSE: 125 ML
     Route: 042
     Dates: start: 20171101, end: 20191112

REACTIONS (1)
  - Osteonecrosis of jaw [Not Recovered/Not Resolved]

NARRATIVE: CASE EVENT DATE: 20190701
